FAERS Safety Report 10103002 (Version 1)
Quarter: 2014Q2

REPORT INFORMATION
  Report Type: Spontaneous
  Country: FR (occurrence: FR)
  Receive Date: 20140424
  Receipt Date: 20140424
  Transmission Date: 20141212
  Serious: Yes (Other)
  Sender: FDA-Public Use
  Company Number: FR-BRISTOL-MYERS SQUIBB COMPANY-20633624

PATIENT
  Age: 49 Year
  Sex: Female

DRUGS (3)
  1. BARACLUDE TABS [Suspect]
     Indication: CHRONIC HEPATITIS B
     Route: 048
     Dates: start: 2009
  2. TAMOXIFEN [Suspect]
     Indication: BREAST CANCER
     Route: 048
     Dates: start: 2009
  3. LEVOTHYROX [Concomitant]
     Indication: HYPOTHYROIDISM

REACTIONS (1)
  - Rosacea [Recovering/Resolving]
